FAERS Safety Report 6377816-8 (Version None)
Quarter: 2009Q3

REPORT INFORMATION
  Report Type: 
  Country: None (occurrence: None)
  Receive Date: 20090925
  Receipt Date: 20090915
  Transmission Date: 20100115
  Serious: Yes (Other)
  Sender: FDA-Public Use
  Company Number: JP-ELI_LILLY_AND_COMPANY-JP200909004179

PATIENT
  Age: 49 Year
  Sex: Male
  Weight: 60.8 kg

DRUGS (2)
  1. HUMALOG [Suspect]
     Dosage: 200 U, UNK
     Route: 058
     Dates: start: 20081014
  2. LANTUS [Concomitant]
     Dosage: 300 U, UNK
     Route: 058
     Dates: start: 20081014

REACTIONS (5)
  - HYPOGLYCAEMIA [None]
  - HYPOGLYCAEMIC COMA [None]
  - INTENTIONAL DRUG MISUSE [None]
  - INTENTIONAL OVERDOSE [None]
  - SUICIDE ATTEMPT [None]
